FAERS Safety Report 12627929 (Version 2)
Quarter: 2016Q3

REPORT INFORMATION
  Report Type: Spontaneous
  Country: US (occurrence: US)
  Receive Date: 20160807
  Receipt Date: 20160809
  Transmission Date: 20161109
  Serious: No
  Sender: FDA-Public Use
  Company Number: US-BIOGEN-2016BI00274415

PATIENT
  Sex: Female

DRUGS (1)
  1. TECFIDERA [Suspect]
     Active Substance: DIMETHYL FUMARATE
     Indication: MULTIPLE SCLEROSIS
     Route: 065
     Dates: start: 20140604

REACTIONS (7)
  - Erythema [Unknown]
  - Excoriation [Unknown]
  - Pain [Recovered/Resolved]
  - Pruritus generalised [Unknown]
  - Discomfort [Unknown]
  - Malaise [Recovered/Resolved with Sequelae]
  - Flushing [Recovered/Resolved]
